FAERS Safety Report 7170303-9 (Version None)
Quarter: 2010Q4

REPORT INFORMATION
  Report Type: 
  Country: None (occurrence: None)
  Receive Date: 20101217
  Receipt Date: 20101014
  Transmission Date: 20110411
  Serious: Yes (Other)
  Sender: FDA-Public Use
  Company Number: A0887652A

PATIENT
  Age: 21 Year
  Sex: Male

DRUGS (1)
  1. LAMICTAL XR [Suspect]
     Dosage: 100MGD PER DAY
     Route: 048
     Dates: start: 20100101

REACTIONS (1)
  - CONVULSION [None]
